FAERS Safety Report 19509689 (Version 3)
Quarter: 2021Q3

REPORT INFORMATION
  Report Type: Report from Study
  Country: FR (occurrence: FR)
  Receive Date: 20210708
  Receipt Date: 20210903
  Transmission Date: 20211014
  Serious: Yes (Death, Hospitalization, Other)
  Sender: FDA-Public Use
  Company Number: FR-PFIZER INC-2021769829

PATIENT
  Age: 78 Year
  Sex: Female

DRUGS (5)
  1. INEXIUM [ESOMEPRAZOLE MAGNESIUM] [Concomitant]
     Active Substance: ESOMEPRAZOLE MAGNESIUM
     Dosage: UNK
     Route: 065
     Dates: start: 2011
  2. PACLITAXEL. [Suspect]
     Active Substance: PACLITAXEL
     Indication: ANAL SQUAMOUS CELL CARCINOMA
     Dosage: 80 MG/M2, CYCLIC (80 MG/M2 AT DAYS 1, 8 AND 15, EVERY 4 WEEKS)
     Route: 042
     Dates: start: 20210519
  3. KARDEGIC [Concomitant]
     Active Substance: ASPIRIN DL-LYSINE
     Dosage: UNK
     Route: 065
     Dates: start: 2011
  4. CARBOPLATIN. [Suspect]
     Active Substance: CARBOPLATIN
     Indication: ANAL SQUAMOUS CELL CARCINOMA
     Dosage: AUC 5, EVERY 4 WEEKS
     Route: 042
     Dates: start: 20210519
  5. TEMERITDUO [Concomitant]
     Active Substance: HYDROCHLOROTHIAZIDE\NEBIVOLOL HYDROCHLORIDE
     Dosage: UNK
     Route: 065
     Dates: start: 2011

REACTIONS (6)
  - General physical health deterioration [Fatal]
  - Respiratory distress [Fatal]
  - Neoplasm progression [Fatal]
  - Pulmonary embolism [Fatal]
  - Deep vein thrombosis [Fatal]
  - Anal squamous cell carcinoma [Fatal]

NARRATIVE: CASE EVENT DATE: 2021
